FAERS Safety Report 14584170 (Version 3)
Quarter: 2018Q2

REPORT INFORMATION
  Report Type: Report from Study
  Country: GB (occurrence: GB)
  Receive Date: 20180228
  Receipt Date: 20180530
  Transmission Date: 20180711
  Serious: Yes (Other)
  Sender: FDA-Public Use
  Company Number: GB-BRISTOL-MYERS SQUIBB COMPANY-BMS-2017-096768

PATIENT
  Age: 81 Year
  Sex: Female

DRUGS (1)
  1. ABATACEPT [Suspect]
     Active Substance: ABATACEPT
     Indication: RHEUMATOID ARTHRITIS
     Dosage: 125 MG, QWK
     Route: 058
     Dates: start: 20171009

REACTIONS (19)
  - Cough [Unknown]
  - Oropharyngeal pain [Unknown]
  - Rheumatoid arthritis [Unknown]
  - Malaise [Unknown]
  - Drug dose omission [Unknown]
  - Chest pain [Unknown]
  - Fall [Unknown]
  - Drug administration error [Unknown]
  - Balance disorder [Unknown]
  - Tooth disorder [Unknown]
  - Adverse event [Unknown]
  - Memory impairment [Unknown]
  - Nasopharyngitis [Unknown]
  - Ligament injury [Unknown]
  - Asthenia [Unknown]
  - Drug ineffective [Unknown]
  - Influenza [Unknown]
  - Injection site bruising [Unknown]
  - Aphasia [Unknown]

NARRATIVE: CASE EVENT DATE: 201712
